FAERS Safety Report 4956687-8 (Version None)
Quarter: 2006Q1

REPORT INFORMATION
  Report Type: 
  Country: None (occurrence: None)
  Receive Date: 20060323
  Receipt Date: 20060316
  Transmission Date: 20060701
  Serious: Yes (Death, Hospitalization)
  Sender: FDA-Public Use
  Company Number: STA-AE-06-025

PATIENT
  Age: 72 Year
  Sex: Female

DRUGS (4)
  1. ACYCLOVIR [Suspect]
     Indication: HERPES ZOSTER
     Dosage: 3 X 10 MG /KG/D
  2. FLUDARABINE [Suspect]
     Indication: ACUTE MYELOID LEUKAEMIA
     Dosage: SEE IMAGE
  3. VARITECT [Suspect]
  4. FOSCAVIR [Suspect]
     Dosage: 2X3.5/GD

REACTIONS (8)
  - CD4 LYMPHOCYTES DECREASED [None]
  - COMA [None]
  - DISORIENTATION [None]
  - ENCEPHALITIS [None]
  - HERPES ZOSTER [None]
  - PROTEIN TOTAL INCREASED [None]
  - RASH [None]
  - VIRAL INFECTION [None]
